FAERS Safety Report 4634378-0 (Version None)
Quarter: 2005Q2

REPORT INFORMATION
  Report Type: 
  Country: None (occurrence: None)
  Receive Date: 20050411
  Receipt Date: 20050228
  Transmission Date: 20051028
  Serious: Yes (Other)
  Sender: FDA-Public Use
  Company Number: 2004114996

PATIENT
  Age: 13 Year
  Sex: Female
  Weight: 49 kg

DRUGS (4)
  1. ZOLOFT [Suspect]
     Indication: ANXIETY
     Dosage: 50 MG, ORAL
     Route: 048
     Dates: start: 20040717
  2. ZOLOFT [Suspect]
     Indication: DEPRESSION
     Dosage: 50 MG, ORAL
     Route: 048
     Dates: start: 20040717
  3. ZOLOFT [Suspect]
     Indication: HALLUCINATION
     Dosage: 50 MG, ORAL
     Route: 048
     Dates: start: 20040717
  4. NITROUS OXIDE W/ OXYGEN [Suspect]
     Indication: ANXIETY

REACTIONS (3)
  - DENTAL CARIES [None]
  - DRUG EFFECT INCREASED [None]
  - DRUG INTERACTION [None]
